FAERS Safety Report 15619575 (Version 1)
Quarter: 2018Q4

REPORT INFORMATION
  Report Type: Spontaneous
  Country: GB (occurrence: GB)
  Receive Date: 20181115
  Receipt Date: 20181115
  Transmission Date: 20190205
  Serious: Yes (Disabling)
  Sender: FDA-Public Use
  Company Number: GB-ACCORD-091902

PATIENT
  Age: 19 Year
  Sex: Male
  Weight: 62 kg

DRUGS (7)
  1. PREDNISOLONE. [Suspect]
     Active Substance: PREDNISOLONE
     Indication: BURKITT^S LYMPHOMA
     Dosage: AS PER CHEMOTHERAPY REGIME.
     Route: 042
     Dates: start: 20020401, end: 20020401
  2. METHOTREXATE. [Suspect]
     Active Substance: METHOTREXATE
     Indication: BURKITT^S LYMPHOMA
     Dosage: AS PER CHEMOTHERAPY REGIME.
     Route: 042
     Dates: start: 20020401, end: 20020401
  3. CYCLOPHOSPHAMIDE/CYCLOPHOSPHAMIDE MONOHYDRATE [Suspect]
     Active Substance: CYCLOPHOSPHAMIDE
     Indication: BURKITT^S LYMPHOMA
     Dosage: AS PER CHEMOTHERAPY REGIME.
     Route: 042
     Dates: start: 20020401, end: 20020401
  4. ONCOVIN [Suspect]
     Active Substance: VINCRISTINE SULFATE
     Indication: BURKITT^S LYMPHOMA
     Dosage: AS PER CHEMOTHERAPY REGIME.
     Route: 042
     Dates: start: 20020401, end: 20020401
  5. RAMIPRIL. [Concomitant]
     Active Substance: RAMIPRIL
     Dosage: IN THE MORNING
  6. DOXORUBICIN [Suspect]
     Active Substance: DOXORUBICIN
     Indication: BURKITT^S LYMPHOMA
     Route: 042
     Dates: start: 20020401, end: 20020401
  7. BISOPROLOL [Concomitant]
     Active Substance: BISOPROLOL
     Dosage: IN THE MORNING

REACTIONS (3)
  - Left ventricular dysfunction [Unknown]
  - Ventricular hypokinesia [Unknown]
  - Cardiac failure [Not Recovered/Not Resolved]

NARRATIVE: CASE EVENT DATE: 201806
